FAERS Safety Report 19032587 (Version 3)
Quarter: 2021Q2

REPORT INFORMATION
  Report Type: Spontaneous
  Country: CH (occurrence: CH)
  Receive Date: 20210319
  Receipt Date: 20210426
  Transmission Date: 20210717
  Serious: No
  Sender: FDA-Public Use
  Company Number: CH-ASTRAZENECA-2021A151855

PATIENT
  Age: 29317 Day
  Sex: Female
  Weight: 50 kg

DRUGS (16)
  1. CANDESARTAN /HYDROCHLOROTHIAZID [Concomitant]
     Indication: HYPERTENSION
     Dosage: 16/12 MG, DAILY
     Route: 048
     Dates: start: 20201104
  2. BEVACIZUMAB. [Concomitant]
     Active Substance: BEVACIZUMAB
     Dosage: DOSE AND FREQUENCY UNKNOWN
     Route: 065
     Dates: start: 20201007, end: 20201216
  3. CALCIUM [Concomitant]
     Active Substance: CALCIUM
     Indication: DRUG THERAPY
     Route: 065
     Dates: start: 20161229
  4. CARBOPLATIN. [Concomitant]
     Active Substance: CARBOPLATIN
     Dosage: DOSE AND FREQUENCY UNKNOWN
     Route: 065
     Dates: start: 20130731, end: 20131203
  5. DENOSUMAB [Concomitant]
     Active Substance: DENOSUMAB
     Indication: DRUG THERAPY
     Route: 065
     Dates: start: 20161229
  6. LYNPARZA [Suspect]
     Active Substance: OLAPARIB
     Indication: OVARIAN CANCER RECURRENT
     Route: 048
     Dates: start: 20210226, end: 20210317
  7. COLNIDIN [Concomitant]
     Indication: HYPERTENSION
     Route: 048
     Dates: start: 20201104
  8. LIPOSOMAL DOXORUBICIN [Concomitant]
     Active Substance: DOXORUBICIN HYDROCHLORIDE
     Dosage: DOSE AND FREQUENCY UNKNOWN
     Route: 065
     Dates: start: 20201007, end: 20210217
  9. METOPROLOL. [Concomitant]
     Active Substance: METOPROLOL
     Indication: HYPERTENSION
     Route: 048
     Dates: start: 20000101
  10. CANDESARTAN. [Concomitant]
     Active Substance: CANDESARTAN
     Indication: HYPERTENSION
     Route: 048
     Dates: start: 20201104
  11. ACETYLSALICILIC [Concomitant]
     Indication: CARDIAC DISORDER
     Route: 048
     Dates: start: 20201104
  12. CARBOPLATIN. [Concomitant]
     Active Substance: CARBOPLATIN
     Dosage: DOSE AND FREQUENCY UNKNOWN
     Route: 065
     Dates: start: 20180416, end: 20180803
  13. CARBOPLATIN. [Concomitant]
     Active Substance: CARBOPLATIN
     Dosage: DOSE AND FREQUENCY UNKNOWN
     Route: 065
     Dates: start: 20200702, end: 20200914
  14. PACLITAXEL. [Concomitant]
     Active Substance: PACLITAXEL
     Dosage: DOSE AND FREQUENCY UNKNOWN
     Route: 065
     Dates: start: 20130731, end: 20131203
  15. TORASEMID [Concomitant]
     Active Substance: TORSEMIDE
     Indication: HYPERTENSION
     Route: 048
     Dates: start: 20201104
  16. VITAMIN D3 [Concomitant]
     Active Substance: CHOLECALCIFEROL
     Indication: DRUG THERAPY
     Route: 065
     Dates: start: 20161229

REACTIONS (2)
  - Blood creatinine increased [Unknown]
  - Renal impairment [Not Recovered/Not Resolved]

NARRATIVE: CASE EVENT DATE: 20210317
